FAERS Safety Report 14356201 (Version 1)
Quarter: 2018Q1

REPORT INFORMATION
  Report Type: Spontaneous
  Country: US (occurrence: US)
  Receive Date: 20180104
  Receipt Date: 20180104
  Transmission Date: 20180509
  Serious: Yes (Hospitalization)
  Sender: FDA-Public Use
  Company Number: None

PATIENT
  Sex: Female

DRUGS (13)
  1. LOSARTAN POT [Concomitant]
     Active Substance: LOSARTAN POTASSIUM
  2. CARVEDILOL. [Concomitant]
     Active Substance: CARVEDILOL
  3. METHYLPRED [Concomitant]
     Active Substance: METHYLPREDNISOLONE
  4. ASPIRIN. [Concomitant]
     Active Substance: ASPIRIN
  5. CYCLOBENZAPRIUNE [Concomitant]
  6. EXJADE [Suspect]
     Active Substance: DEFERASIROX
     Indication: IRON METABOLISM DISORDER
     Route: 048
     Dates: start: 20161026
  7. FUROSEMIDE. [Concomitant]
     Active Substance: FUROSEMIDE
  8. ALLOPURINOL. [Concomitant]
     Active Substance: ALLOPURINOL
  9. DESFERAL [Concomitant]
     Active Substance: DEFEROXAMINE MESYLATE
  10. PREDNISONE. [Concomitant]
     Active Substance: PREDNISONE
  11. CELEBREX [Concomitant]
     Active Substance: CELECOXIB
  12. AMOX/K CLAV [Concomitant]
     Active Substance: AMOXICILLIN\CLAVULANATE POTASSIUM
  13. DICYCLOMINE [Concomitant]
     Active Substance: DICYCLOMINE HYDROCHLORIDE

REACTIONS (1)
  - Malaise [None]
